FAERS Safety Report 5897023-2 (Version None)
Quarter: 2008Q3

REPORT INFORMATION
  Report Type: 
  Country: None (occurrence: None)
  Receive Date: 20080924
  Receipt Date: 20080207
  Transmission Date: 20090109
  Serious: Yes (Hospitalization)
  Sender: FDA-Public Use
  Company Number: US-ASTRAZENECA-2008UW02586

PATIENT
  Age: 54 Year
  Sex: Male

DRUGS (5)
  1. SEROQUEL [Suspect]
     Indication: HALLUCINATION, AUDITORY
     Route: 048
     Dates: start: 20080101
  2. SEROQUEL [Suspect]
     Route: 048
     Dates: start: 20080206
  3. REQUIP [Concomitant]
  4. SINEMET [Concomitant]
  5. COMTAN [Concomitant]

REACTIONS (7)
  - DIARRHOEA [None]
  - HUNGER [None]
  - ILL-DEFINED DISORDER [None]
  - MOVEMENT DISORDER [None]
  - MUSCLE RIGIDITY [None]
  - PANIC ATTACK [None]
  - SOMNOLENCE [None]
